FAERS Safety Report 4876276-3 (Version None)
Quarter: 2005Q4

REPORT INFORMATION
  Report Type: 
  Country: None (occurrence: None)
  Receive Date: 20051205
  Receipt Date: 20051025
  Transmission Date: 20060501
  Serious: No
  Sender: FDA-Public Use
  Company Number: USA0510111849

PATIENT
  Age: 90 Year
  Sex: Female

DRUGS (7)
  1. CYMBALTA [Suspect]
     Indication: HERPES ZOSTER
  2. CYMBALTA [Suspect]
     Indication: PAIN
  3. NEURONTIN [Concomitant]
  4. LOTREL [Concomitant]
  5. TOPROL-XL [Concomitant]
  6. ZOCOR [Concomitant]
  7. XANAX [Concomitant]

REACTIONS (3)
  - DELUSION [None]
  - DISORIENTATION [None]
  - HALLUCINATION [None]
